FAERS Safety Report 6222530-2 (Version None)
Quarter: 2009Q2

REPORT INFORMATION
  Report Type: 
  Country: None (occurrence: None)
  Receive Date: 20090611
  Receipt Date: 20090602
  Transmission Date: 20091009
  Serious: Yes (Other)
  Sender: FDA-Public Use
  Company Number: DE-PFIZER INC-2009210006

PATIENT
  Age: 75 Year

DRUGS (2)
  1. SUTENT [Suspect]
     Indication: METASTATIC RENAL CELL CARCINOMA
     Dosage: 50 MG, 1X/DAY
     Route: 048
     Dates: start: 20090327
  2. SUTENT [Suspect]
     Indication: BREAST CANCER METASTATIC

REACTIONS (13)
  - ASTHENIA [None]
  - BLOOD BILIRUBIN UNCONJUGATED INCREASED [None]
  - BLOOD THYROID STIMULATING HORMONE INCREASED [None]
  - DEHYDRATION [None]
  - DIARRHOEA [None]
  - HYPOTENSION [None]
  - ILEUS PARALYTIC [None]
  - JAUNDICE [None]
  - NAUSEA [None]
  - PERIPHERAL VASCULAR DISORDER [None]
  - PLATELET COUNT DECREASED [None]
  - RED BLOOD CELL COUNT DECREASED [None]
  - WHITE BLOOD CELL COUNT DECREASED [None]
